FAERS Safety Report 9641834 (Version 1)
Quarter: 2013Q4

REPORT INFORMATION
  Report Type: Report from Study
  Country: US (occurrence: US)
  Receive Date: 20131023
  Receipt Date: 20131023
  Transmission Date: 20140711
  Serious: Yes (Hospitalization)
  Sender: FDA-Public Use
  Company Number: US-ABBVIE-13P-163-1159524-00

PATIENT
  Age: 76 Year
  Sex: Female

DRUGS (1)
  1. HUMIRA [Suspect]
     Indication: RHEUMATOID ARTHRITIS
     Dates: start: 201306

REACTIONS (4)
  - Mental status changes [Recovering/Resolving]
  - Coronary artery disease [Recovering/Resolving]
  - Chest pain [Recovering/Resolving]
  - Dehydration [Recovering/Resolving]
